FAERS Safety Report 24937823 (Version 1)
Quarter: 2025Q1

REPORT INFORMATION
  Report Type: Report from Study
  Country: US (occurrence: US)
  Receive Date: 20250206
  Receipt Date: 20250206
  Transmission Date: 20250408
  Serious: Yes (Hospitalization, Other)
  Sender: JOHNSON AND JOHNSON
  Company Number: US-JNJFOC-20240741784

PATIENT
  Age: 73 Year
  Sex: Male
  Weight: 82.8 kg

DRUGS (28)
  1. CILTACABTAGENE AUTOLEUCEL [Suspect]
     Active Substance: CILTACABTAGENE AUTOLEUCEL
     Indication: Plasma cell myeloma
     Route: 042
     Dates: start: 20240703, end: 20240703
  2. SULFAMETHOXAZOLE AND TRIMETHOPRIM [Concomitant]
     Active Substance: SULFAMETHOXAZOLE\TRIMETHOPRIM
     Indication: Antifungal prophylaxis
     Dosage: 1 TAB
     Route: 048
     Dates: start: 20240627
  3. SODIUM CHLORIDE [Concomitant]
     Active Substance: SODIUM CHLORIDE
     Indication: Chemotherapy side effect prophylaxis
     Route: 040
     Dates: start: 20240628, end: 20240703
  4. SODIUM CHLORIDE [Concomitant]
     Active Substance: SODIUM CHLORIDE
     Indication: Vehicle solution use
     Route: 040
     Dates: start: 20240703
  5. SODIUM CHLORIDE [Concomitant]
     Active Substance: SODIUM CHLORIDE
     Indication: Premedication
     Route: 042
     Dates: start: 20240710, end: 20240710
  6. SODIUM CHLORIDE [Concomitant]
     Active Substance: SODIUM CHLORIDE
     Indication: Premedication
     Route: 042
     Dates: start: 20240626, end: 20240626
  7. GRANISETRON [Concomitant]
     Active Substance: GRANISETRON
     Indication: Premedication
     Route: 042
     Dates: start: 20240630, end: 20240630
  8. DIPHENHYDRAMINE [Concomitant]
     Active Substance: DIPHENHYDRAMINE
     Indication: Premedication
     Route: 042
     Dates: start: 20240703, end: 20240703
  9. ACETAMINOPHEN [Concomitant]
     Active Substance: ACETAMINOPHEN
     Indication: Premedication
     Route: 048
     Dates: start: 20240703, end: 20240703
  10. HEPARIN SODIUM [Concomitant]
     Active Substance: HEPARIN SODIUM
     Indication: Vehicle solution use
     Dates: start: 20240704
  11. POLYETHYLENE GLYCOLS [Concomitant]
     Active Substance: POLYETHYLENE GLYCOLS
     Indication: Constipation
     Route: 048
     Dates: start: 20240707
  12. MICAFUNGIN [Concomitant]
     Active Substance: MICAFUNGIN SODIUM
     Indication: Antifungal prophylaxis
     Route: 042
     Dates: start: 20240707, end: 20240707
  13. LIDOCAINE 5% EXTRA [Concomitant]
     Indication: Fluid intake reduced
     Route: 042
     Dates: start: 20240710
  14. AMLODIPINE [Concomitant]
     Active Substance: AMLODIPINE BESYLATE
     Indication: Hypertension
     Route: 048
     Dates: start: 20240712
  15. AMLODIPINE [Concomitant]
     Active Substance: AMLODIPINE BESYLATE
     Route: 048
     Dates: start: 20240626
  16. SODIUM BICARBONATE [Concomitant]
     Active Substance: SODIUM BICARBONATE
     Route: 048
  17. VITAMINS NOS [Concomitant]
     Active Substance: VITAMINS
     Indication: Nutritional supplementation
     Route: 048
  18. LEVOTHYROXINE [Concomitant]
     Active Substance: LEVOTHYROXINE
     Indication: Hypothyroidism
     Route: 048
  19. INSULIN ASPART [Concomitant]
     Active Substance: INSULIN ASPART
     Indication: Hyperglycaemia
     Dosage: 100 UNITS/ML- SLIDING SCALE??FREQUENCY:BEFORE MEALS
     Route: 058
  20. ACETAMINOPHEN\HYDROCODONE [Concomitant]
     Active Substance: ACETAMINOPHEN\HYDROCODONE
     Indication: Neuropathy peripheral
     Route: 048
  21. DOXAZOSIN [Concomitant]
     Active Substance: DOXAZOSIN MESYLATE
     Indication: Hypertension
     Route: 048
  22. DOXAZOSIN [Concomitant]
     Active Substance: DOXAZOSIN MESYLATE
     Indication: Benign prostatic hyperplasia
  23. ATORVASTATIN [Concomitant]
     Active Substance: ATORVASTATIN
     Indication: Blood cholesterol increased
     Route: 048
  24. VALACYCLOVIR [Concomitant]
     Active Substance: VALACYCLOVIR HYDROCHLORIDE
     Indication: Infection prophylaxis
     Route: 048
     Dates: start: 20240626
  25. PROCHLORPERAZINE [Concomitant]
     Active Substance: PROCHLORPERAZINE
     Indication: Prophylaxis of nausea and vomiting
     Route: 048
     Dates: start: 20240626
  26. ONDANSETRON [Concomitant]
     Active Substance: ONDANSETRON
     Indication: Prophylaxis of nausea and vomiting
     Route: 048
     Dates: start: 20240626
  27. NYSTATIN [Concomitant]
     Active Substance: NYSTATIN
     Indication: Infection prophylaxis
     Dosage: 500000 UNITS- 100000UNITS/ML
     Route: 048
     Dates: start: 20240626
  28. CEFPODOXIME [Concomitant]
     Active Substance: CEFPODOXIME
     Indication: Infection prophylaxis
     Route: 048
     Dates: start: 20240626

REACTIONS (13)
  - Neutropenia [Not Recovered/Not Resolved]
  - Cytokine release syndrome [Recovered/Resolved]
  - Thrombocytopenia [Not Recovered/Not Resolved]
  - Oropharyngeal pain [Unknown]
  - Adverse event [Not Recovered/Not Resolved]
  - Appetite disorder [Unknown]
  - Nasal congestion [Recovered/Resolved]
  - Hypocalcaemia [Recovered/Resolved]
  - Constipation [Unknown]
  - Nausea [Unknown]
  - Fluid intake reduced [Unknown]
  - Upper respiratory tract infection [Unknown]
  - Oedema peripheral [Unknown]

NARRATIVE: CASE EVENT DATE: 20240703
